FAERS Safety Report 7432884-7 (Version None)
Quarter: 2011Q2

REPORT INFORMATION
  Report Type: 
  Country: None (occurrence: None)
  Receive Date: 20110422
  Receipt Date: 20110415
  Transmission Date: 20111010
  Serious: Yes (Hospitalization, Other)
  Sender: FDA-Public Use
  Company Number: US-TEVA-276862USA

PATIENT
  Age: 43 Year
  Sex: Female

DRUGS (2)
  1. INTERFERON BETA NOS [Suspect]
  2. COPAXONE [Suspect]
     Indication: MULTIPLE SCLEROSIS
     Route: 058

REACTIONS (2)
  - MULTIPLE SCLEROSIS RELAPSE [None]
  - HEPATIC FAILURE [None]
